FAERS Safety Report 15990018 (Version 2)
Quarter: 2019Q4

REPORT INFORMATION
  Report Type: Spontaneous
  Country: UY (occurrence: UY)
  Receive Date: 20190221
  Receipt Date: 20191213
  Transmission Date: 20200122
  Serious: Yes (Other)
  Sender: FDA-Public Use
  Company Number: UY-REGENERON PHARMACEUTICALS, INC.-2019-18081

PATIENT

DRUGS (1)
  1. EYLEA [Suspect]
     Active Substance: AFLIBERCEPT
     Indication: NEOVASCULAR AGE-RELATED MACULAR DEGENERATION
     Dosage: LAST INJECTION IN NOV-2018
     Dates: start: 2015, end: 201811

REACTIONS (1)
  - Ocular procedural complication [Unknown]

NARRATIVE: CASE EVENT DATE: 2018
